FAERS Safety Report 8103708-X (Version None)
Quarter: 2012Q1

REPORT INFORMATION
  Report Type: 
  Country: None (occurrence: None)
  Receive Date: 20120201
  Receipt Date: 20120126
  Transmission Date: 20120608
  Serious: Yes (Life-Threatening, Hospitalization)
  Sender: FDA-Public Use
  Company Number: FR-PFIZER INC-2011143269

PATIENT
  Age: 53 Year
  Sex: Male

DRUGS (4)
  1. CLARITHROMYCIN [Concomitant]
     Indication: ATYPICAL MYCOBACTERIAL INFECTION
     Dosage: 500 MG, 2X/DAY
     Route: 048
     Dates: start: 20110222
  2. ZYVOX [Suspect]
     Indication: ATYPICAL MYCOBACTERIAL INFECTION
     Dosage: 600 MG, 2X/DAY
     Route: 048
     Dates: start: 20110222, end: 20110602
  3. TRUVADA [Concomitant]
     Indication: HIV INFECTION
     Dosage: 200/245 MG, ALTERNATE DAY
     Route: 048
     Dates: start: 20101101, end: 20110609
  4. ISENTRESS [Concomitant]
     Indication: HIV INFECTION
     Dosage: 400 MG, 2X/DAY
     Route: 048
     Dates: start: 20101101, end: 20110609

REACTIONS (2)
  - DYSPNOEA EXERTIONAL [None]
  - PANCYTOPENIA [None]
